FAERS Safety Report 14433280 (Version 1)
Quarter: 2018Q1

REPORT INFORMATION
  Report Type: Spontaneous
  Country: US (occurrence: US)
  Receive Date: 20180124
  Receipt Date: 20180124
  Transmission Date: 20180509
  Serious: Yes (Hospitalization)
  Sender: FDA-Public Use
  Company Number: US-PIRAMAL CRITICAL CARE LIMITED-2017-PEL-003235

PATIENT

DRUGS (10)
  1. NORCO [Concomitant]
     Active Substance: ACETAMINOPHEN\HYDROCODONE BITARTRATE
     Indication: PAIN
     Dosage: 5-325MG EVERY FOUR HOURS, PRN
     Route: 048
  2. PRISTIQ EXTENDED-RELEASE [Concomitant]
     Active Substance: DESVENLAFAXINE SUCCINATE
     Dosage: 50 MG, QD
     Route: 048
  3. APTIOM [Concomitant]
     Active Substance: ESLICARBAZEPINE ACETATE
     Dosage: 1200 MG, QD
     Route: 048
  4. GABLOFEN [Suspect]
     Active Substance: BACLOFEN
     Indication: CEREBRAL PALSY
     Dosage: 350 ?G, QD
     Route: 037
  5. LINZESS [Concomitant]
     Active Substance: LINACLOTIDE
     Dosage: 290 ?G, QD
     Route: 048
  6. GABLOFEN [Suspect]
     Active Substance: BACLOFEN
     Indication: MUSCLE SPASTICITY
     Dosage: 750 ?G, QD
     Route: 037
  7. GABLOFEN [Suspect]
     Active Substance: BACLOFEN
     Indication: QUADRIPARESIS
  8. DILANTIN [Concomitant]
     Active Substance: PHENYTOIN
     Dosage: 75 MG, QD
     Route: 048
  9. DILANTIN [Concomitant]
     Active Substance: PHENYTOIN
     Dosage: 100 MG, QD
     Route: 048
  10. LAMICTAL [Concomitant]
     Active Substance: LAMOTRIGINE
     Dosage: 300 MG, QD
     Route: 048

REACTIONS (7)
  - Condition aggravated [Recovered/Resolved]
  - Muscle contracture [Recovered/Resolved]
  - Fall [Recovered/Resolved]
  - Weight decreased [Unknown]
  - Withdrawal syndrome [Recovered/Resolved]
  - Agitation [Unknown]
  - Device malfunction [Recovered/Resolved]

NARRATIVE: CASE EVENT DATE: 20170916
